FAERS Safety Report 8452835-6 (Version None)
Quarter: 2012Q2

REPORT INFORMATION
  Report Type: 
  Country: None (occurrence: None)
  Receive Date: 20120620
  Receipt Date: 20120429
  Transmission Date: 20120825
  Serious: No
  Sender: FDA-Public Use
  Company Number: US-VERTEX PHARMACEUTICALS INC.-AE-2012-006199

PATIENT
  Sex: Male
  Weight: 74.002 kg

DRUGS (5)
  1. PEGASYS [Concomitant]
     Indication: HEPATITIS C
     Route: 058
     Dates: start: 20120429
  2. METFORMIN HCL [Concomitant]
     Indication: DIABETES MELLITUS
  3. PROPRANOLOL [Concomitant]
     Indication: HYPERTENSION
  4. INCIVEK [Suspect]
     Indication: HEPATITIS C
     Route: 048
     Dates: start: 20120429
  5. RIBAVIRIN [Concomitant]
     Indication: HEPATITIS C
     Route: 048
     Dates: start: 20120429

REACTIONS (3)
  - CHILLS [None]
  - FEELING OF BODY TEMPERATURE CHANGE [None]
  - PAIN [None]
